FAERS Safety Report 15056706 (Version 3)
Quarter: 2018Q3

REPORT INFORMATION
  Report Type: Spontaneous
  Country: US (occurrence: US)
  Receive Date: 20180623
  Receipt Date: 20180913
  Transmission Date: 20181010
  Serious: No
  Sender: FDA-Public Use
  Company Number: US-JNJFOC-20180610644

PATIENT
  Sex: Female
  Weight: 73.03 kg

DRUGS (7)
  1. BIOTIN [Concomitant]
     Active Substance: BIOTIN
     Route: 065
  2. PREDNISONE. [Concomitant]
     Active Substance: PREDNISONE
     Route: 065
  3. SIMPONI ARIA [Suspect]
     Active Substance: GOLIMUMAB
     Indication: RHEUMATOID ARTHRITIS
     Dosage: 50MG/4ML/ WEEK 4,??THEN EVERY 8 WEEKS/ IV??? INTRAVENOUS
     Route: 042
     Dates: start: 2018
  4. VYTORIN [Concomitant]
     Active Substance: EZETIMIBE\SIMVASTATIN
     Route: 065
  5. CYMBALTA [Concomitant]
     Active Substance: DULOXETINE HYDROCHLORIDE
     Route: 065
  6. VITAMIN?A [Concomitant]
     Active Substance: VITAMIN A
     Route: 065
  7. SIMPONI ARIA [Suspect]
     Active Substance: GOLIMUMAB
     Indication: RHEUMATOID ARTHRITIS
     Dosage: 50MG/4ML/ WEEK 4,??THEN EVERY 8 WEEKS/ IV??? INTRAVENOUS
     Route: 042

REACTIONS (4)
  - Musculoskeletal pain [Unknown]
  - Bronchitis [Unknown]
  - Arthralgia [Unknown]
  - Pain in extremity [Unknown]
